FAERS Safety Report 13395106 (Version 1)
Quarter: 2017Q1

REPORT INFORMATION
  Report Type: Spontaneous
  Country: US (occurrence: US)
  Receive Date: 20170331
  Receipt Date: 20170331
  Transmission Date: 20170429
  Serious: Yes (Hospitalization)
  Sender: FDA-Public Use
  Company Number: None

PATIENT
  Age: 48 Year
  Sex: Male

DRUGS (2)
  1. CYCLOPHOSPHAMIDE. [Suspect]
     Active Substance: CYCLOPHOSPHAMIDE
     Indication: BURKITT^S LYMPHOMA
     Dates: start: 20071028, end: 20080109
  2. VINCRISTINE [Suspect]
     Active Substance: VINCRISTINE
     Dates: start: 20071024, end: 20100606

REACTIONS (5)
  - Myelodysplastic syndrome [None]
  - Thrombocytopenia [None]
  - Leukopenia [None]
  - Anaemia [None]
  - Febrile neutropenia [None]

NARRATIVE: CASE EVENT DATE: 20161208
